FAERS Safety Report 7740359-0 (Version None)
Quarter: 2011Q3

REPORT INFORMATION
  Report Type: 
  Country: None (occurrence: None)
  Receive Date: 20110909
  Receipt Date: 20110906
  Transmission Date: 20111222
  Serious: No
  Sender: FDA-Public Use
  Company Number: US-BAYER-2011-082829

PATIENT
  Age: 35 Year
  Sex: Female

DRUGS (2)
  1. MIRENA [Suspect]
     Indication: MENORRHAGIA
     Dosage: DAILY DOSE 20 ?G
     Route: 015
     Dates: start: 20110607, end: 20110828
  2. MIRENA [Suspect]
     Indication: DYSMENORRHOEA

REACTIONS (2)
  - DEVICE EXPULSION [None]
  - AMENORRHOEA [None]
